FAERS Safety Report 4404516-3 (Version None)
Quarter: 2004Q3

REPORT INFORMATION
  Report Type: 
  Country: None (occurrence: None)
  Receive Date: 20040720
  Receipt Date: 20040707
  Transmission Date: 20050211
  Serious: Yes (Other)
  Sender: FDA-Public Use
  Company Number: 2004040168

PATIENT
  Sex: Female

DRUGS (4)
  1. NEURONTIN [Suspect]
     Indication: EPILEPSY
     Dosage: 600 MG (300 MG, 2 IN 1 D), ORAL
     Route: 048
     Dates: start: 20040507, end: 20040513
  2. ALL OTHER THERAPEUTIC PRODUCTS [Concomitant]
  3. ROSIGLITAZONE MALEATE [Concomitant]
  4. METFORMIN HCL [Concomitant]

REACTIONS (6)
  - ASPHYXIA [None]
  - CEREBROVASCULAR ACCIDENT [None]
  - CONVULSION [None]
  - DIFFICULTY IN WALKING [None]
  - DIZZINESS [None]
  - HYPERTENSION [None]
